FAERS Safety Report 6467314-5 (Version None)
Quarter: 2009Q4

REPORT INFORMATION
  Report Type: 
  Country: None (occurrence: None)
  Receive Date: 20091202
  Receipt Date: 20091125
  Transmission Date: 20100525
  Serious: Yes (Hospitalization)
  Sender: FDA-Public Use
  Company Number: US-ELI_LILLY_AND_COMPANY-US200911006648

PATIENT
  Sex: Female

DRUGS (1)
  1. HUMULIN 70/30 [Suspect]
     Dosage: 15 U, 2/D
     Dates: start: 20050901

REACTIONS (4)
  - ABDOMINAL DISTENSION [None]
  - HERNIA [None]
  - MALAISE [None]
  - POST PROCEDURAL INFECTION [None]
